FAERS Safety Report 13753279 (Version 1)
Quarter: 2017Q3

REPORT INFORMATION
  Report Type: Report from Study
  Country: None (occurrence: US)
  Receive Date: 20170714
  Receipt Date: 20170714
  Transmission Date: 20171127
  Serious: No
  Sender: FDA-Public Use
  Company Number: US-IPSEN BIOPHARMACEUTICALS, INC.-2013-0843

PATIENT
  Age: 3 Year
  Sex: Male
  Weight: 11.3 kg

DRUGS (2)
  1. INCRELEX [Suspect]
     Active Substance: MECASERMIN
     Indication: PRIMARY INSULIN LIKE GROWTH FACTOR-1 DEFICIENCY
     Route: 065
     Dates: start: 20130128
  2. INCRELEX [Suspect]
     Active Substance: MECASERMIN
     Route: 065

REACTIONS (8)
  - Decreased appetite [None]
  - Drug dose omission [Unknown]
  - Pharyngeal erythema [Unknown]
  - Vomiting [None]
  - Nasopharyngitis [None]
  - Nausea [None]
  - Cough [None]
  - Pyrexia [None]

NARRATIVE: CASE EVENT DATE: 20130203
